FAERS Safety Report 23873426 (Version 1)
Quarter: 2024Q2

REPORT INFORMATION
  Report Type: Spontaneous
  Country: GB (occurrence: GB)
  Receive Date: 20240520
  Receipt Date: 20240520
  Transmission Date: 20240715
  Serious: Yes (Other)
  Sender: FDA-Public Use
  Company Number: GB-MYLANLABS-2024M1044798

PATIENT
  Sex: Male

DRUGS (1)
  1. CLOZARIL [Suspect]
     Active Substance: CLOZAPINE
     Indication: Schizophrenia
     Dosage: UNK
     Route: 048
     Dates: start: 20240507

REACTIONS (5)
  - Poisoning [Unknown]
  - Mental disorder [Unknown]
  - Diarrhoea [Unknown]
  - Treatment noncompliance [Unknown]
  - Therapy interrupted [Unknown]
